FAERS Safety Report 9109527 (Version 2)
Quarter: 2013Q1

REPORT INFORMATION
  Report Type: Spontaneous
  Country: US (occurrence: US)
  Receive Date: 20130222
  Receipt Date: 20130319
  Transmission Date: 20140127
  Serious: Yes (Death, Hospitalization)
  Sender: FDA-Public Use
  Company Number: US-B.I. PHARMACEUTICALS,INC./RIDGEFIELD-2013-BI-04489BP

PATIENT
  Age: 88 Year
  Sex: Male
  Weight: 76 kg

DRUGS (2)
  1. PRADAXA [Suspect]
     Indication: ATRIAL FIBRILLATION
     Dosage: 300 MG
     Route: 048
  2. ASPIRIN [Concomitant]

REACTIONS (5)
  - Subdural haematoma [Fatal]
  - Head injury [Fatal]
  - Fall [Unknown]
  - Head injury [Unknown]
  - Cerebral disorder [Unknown]
